FAERS Safety Report 25675096 (Version 1)
Quarter: 2025Q3

REPORT INFORMATION
  Report Type: Spontaneous
  Country: US (occurrence: None)
  Receive Date: 20250812
  Receipt Date: 20250812
  Transmission Date: 20251021
  Serious: Yes (Hospitalization)
  Sender: FDA-CTU
  Company Number: None

PATIENT
  Sex: Male

DRUGS (3)
  1. BOSENTAN [Suspect]
     Active Substance: BOSENTAN
     Indication: Pulmonary arterial hypertension
     Dosage: 125 MG DAILY ORAL
     Route: 051
     Dates: start: 20220701
  2. LASIX [Suspect]
     Active Substance: FUROSEMIDE
  3. METOLAZONE [Suspect]
     Active Substance: METOLAZONE

REACTIONS (5)
  - Pneumonia aspiration [None]
  - Staphylococcal infection [None]
  - Rhinovirus infection [None]
  - Blood sodium decreased [None]
  - Peripheral swelling [None]
